FAERS Safety Report 13710369 (Version 1)
Quarter: 2017Q3

REPORT INFORMATION
  Report Type: Spontaneous
  Country: US (occurrence: US)
  Receive Date: 20170703
  Receipt Date: 20170703
  Transmission Date: 20171127
  Serious: Yes (Other)
  Sender: FDA-Public Use
  Company Number: US-APOTEX-2017AP013601

PATIENT
  Age: 16 Year
  Sex: Male

DRUGS (1)
  1. SOTALOL HYDROCHLORIDE. [Suspect]
     Active Substance: SOTALOL HYDROCHLORIDE
     Indication: ARRHYTHMIA PROPHYLAXIS
     Route: 065

REACTIONS (3)
  - Drug ineffective [Unknown]
  - Bradycardia [Unknown]
  - Dizziness [Unknown]
